FAERS Safety Report 8595350-1 (Version None)
Quarter: 2012Q3

REPORT INFORMATION
  Report Type: 
  Country: None (occurrence: None)
  Receive Date: 20120815
  Receipt Date: 20120809
  Transmission Date: 20120928
  Serious: No
  Sender: FDA-Public Use
  Company Number: US-B.I. PHARMACEUTICALS,INC./RIDGEFIELD-2012-BP-18842BP

PATIENT
  Sex: Female
  Weight: 86 kg

DRUGS (9)
  1. LYRICA [Concomitant]
     Indication: NEUROPATHY PERIPHERAL
     Dosage: 150 MG
     Route: 048
     Dates: start: 20120101
  2. LEVOTHYROXINE SODIUM [Concomitant]
     Indication: HYPOTHYROIDISM
     Route: 048
     Dates: start: 20110101
  3. SPIRIVA [Suspect]
     Indication: CHRONIC OBSTRUCTIVE PULMONARY DISEASE
     Dosage: 18 MCG
     Route: 055
     Dates: start: 20120801
  4. SPIRIVA [Suspect]
     Dosage: 18 MCG
     Route: 048
     Dates: start: 20120809, end: 20120809
  5. CYCLOSET [Concomitant]
     Indication: DIABETES MELLITUS
     Dosage: 0.4 MG
     Route: 048
     Dates: start: 20110101
  6. FUROSEMIDE [Concomitant]
     Indication: CARDIAC FAILURE CONGESTIVE
     Dosage: 40 MG
     Route: 048
  7. PREDNISONE TAB [Concomitant]
     Indication: RESPIRATORY DISORDER
     Dosage: 20 MG
     Route: 048
     Dates: start: 20120101
  8. SIMVASTATIN [Concomitant]
     Indication: BLOOD CHOLESTEROL INCREASED
     Dosage: 40 MG
     Route: 048
     Dates: start: 20050101
  9. DIAZEPAM [Concomitant]
     Indication: MENIERE'S DISEASE
     Dosage: 10 MG
     Route: 048
     Dates: start: 20070101

REACTIONS (1)
  - INCORRECT ROUTE OF DRUG ADMINISTRATION [None]
